FAERS Safety Report 17489295 (Version 2)
Quarter: 2020Q2

REPORT INFORMATION
  Report Type: Spontaneous
  Country: US (occurrence: US)
  Receive Date: 20200303
  Receipt Date: 20200403
  Transmission Date: 20200713
  Serious: Yes (Other)
  Sender: FDA-Public Use
  Company Number: NVSC2020US057924

PATIENT
  Sex: Female

DRUGS (1)
  1. BETAMETHASONE. [Suspect]
     Active Substance: BETAMETHASONE
     Indication: FOETAL EXPOSURE DURING PREGNANCY
     Dosage: MATERNAL EXPOSURE: 2 DOSES
     Route: 064

REACTIONS (10)
  - Respiratory failure [Recovering/Resolving]
  - Tachycardia [Recovering/Resolving]
  - Foetal exposure during pregnancy [Unknown]
  - Viral myocarditis [Recovering/Resolving]
  - Hydrops foetalis [Recovering/Resolving]
  - Premature baby [Unknown]
  - Ascites [Recovering/Resolving]
  - Pericardial effusion [Recovering/Resolving]
  - Pleural effusion [Recovering/Resolving]
  - Hypotension [Recovering/Resolving]
